FAERS Safety Report 7454716-3 (Version None)
Quarter: 2011Q2

REPORT INFORMATION
  Report Type: 
  Country: None (occurrence: None)
  Receive Date: 20110503
  Receipt Date: 20100419
  Transmission Date: 20111010
  Serious: Yes (Other)
  Sender: FDA-Public Use
  Company Number: US-PFIZER INC-2009276102

PATIENT
  Sex: Female
  Weight: 77 kg

DRUGS (6)
  1. PROVERA [Suspect]
     Indication: HORMONE REPLACEMENT THERAPY
     Dosage: UNK
     Route: 048
     Dates: start: 19950101, end: 20000101
  2. PREMARIN [Suspect]
     Indication: HORMONE REPLACEMENT THERAPY
     Dosage: UNK
     Dates: start: 19950101, end: 20000101
  3. MEDROXYPROGESTERONE [Suspect]
     Indication: HORMONE REPLACEMENT THERAPY
     Dosage: UNK
     Dates: start: 19950101, end: 20000101
  4. CAPTOPRIL [Concomitant]
     Indication: HYPERTENSION
     Dosage: 25MG, 3 TABS, TWICE DAILY
     Route: 048
  5. FLONASE [Concomitant]
     Indication: HYPERSENSITIVITY
     Dosage: UNK
     Dates: start: 19980101
  6. ADALAT [Concomitant]
     Indication: HYPERTENSION
     Dosage: 90 MG, 1X/DAY

REACTIONS (1)
  - BREAST CANCER [None]
